FAERS Safety Report 7239559-8 (Version None)
Quarter: 2011Q1

REPORT INFORMATION
  Report Type: 
  Country: None (occurrence: None)
  Receive Date: 20110121
  Receipt Date: 20110110
  Transmission Date: 20110831
  Serious: Yes (Other)
  Sender: FDA-Public Use
  Company Number: FR-GENENTECH-309084

PATIENT
  Sex: Female

DRUGS (6)
  1. LUCENTIS [Suspect]
     Indication: CHOROIDAL NEOVASCULARISATION
     Dosage: UNK
     Route: 031
     Dates: start: 20100421
  2. LUCENTIS [Suspect]
     Dosage: UNK
     Route: 031
     Dates: start: 20100801
  3. LUCENTIS [Suspect]
     Dosage: UNK
     Route: 031
     Dates: start: 20101013
  4. LUCENTIS [Suspect]
     Dosage: UNK
     Route: 031
     Dates: start: 20100701
  5. LUCENTIS [Suspect]
     Dosage: UNK
     Route: 031
     Dates: start: 20100519
  6. LUCENTIS [Suspect]
     Dosage: UNK
     Route: 031
     Dates: start: 20100601

REACTIONS (5)
  - SCOTOMA [None]
  - RETINAL EXUDATES [None]
  - VISUAL ACUITY REDUCED [None]
  - RETINAL DEGENERATION [None]
  - RETINAL HAEMORRHAGE [None]
